FAERS Safety Report 13800904 (Version 1)
Quarter: 2017Q3

REPORT INFORMATION
  Report Type: Spontaneous
  Country: US (occurrence: TW)
  Receive Date: 20170727
  Receipt Date: 20170727
  Transmission Date: 20171127
  Serious: Yes (Life-Threatening, Hospitalization)
  Sender: FDA-Public Use
  Company Number: US-PFIZER INC-274038

PATIENT
  Age: 68 Year
  Sex: Male

DRUGS (10)
  1. SODIUM BICARBONATE. [Concomitant]
     Active Substance: SODIUM BICARBONATE
     Indication: GOUT
     Dosage: 300.00 MG, 3 IN 1 DAY
     Route: 048
     Dates: start: 20090228
  2. PANTOPRAZOLE [Concomitant]
     Active Substance: PANTOPRAZOLE
     Indication: PROPHYLAXIS AGAINST GASTROINTESTINAL ULCER
     Dosage: 40.00 MG
     Route: 048
     Dates: start: 20090324
  3. MAGNESIUM OXIDE. [Concomitant]
     Active Substance: MAGNESIUM OXIDE
     Indication: CONSTIPATION
     Dosage: 250.00 MG, 4 IN 1 DAY
     Route: 048
     Dates: start: 20081205
  4. CYTARABINE. [Suspect]
     Active Substance: CYTARABINE
     Indication: ACUTE MYELOID LEUKAEMIA
     Dosage: 20.00 MG/M2, ADMINISTERED ON DAYS 1-10 OF CYCLE
     Route: 058
     Dates: start: 20090414, end: 20090423
  5. ALLOPURINOL. [Concomitant]
     Active Substance: ALLOPURINOL
     Indication: GOUT
     Dosage: 100.00 MG, 1 IN 1 DAY
     Route: 048
     Dates: start: 20090304
  6. FELODIPINE. [Concomitant]
     Active Substance: FELODIPINE
     Indication: HYPERTENSION
     Dosage: 100.00 MG, 1 IN 1 DAY
     Route: 048
     Dates: start: 20090304
  7. PREDNISOLONE. [Concomitant]
     Active Substance: PREDNISOLONE
     Indication: GOUT
     Dosage: 5.00 MG, 3 IN 1 DAY
     Route: 048
     Dates: start: 20090312
  8. FUSIDATE SODIUM [Concomitant]
     Active Substance: FUSIDATE SODIUM
     Indication: FOLLICULITIS
     Dosage: 5.00 GRAMS
     Route: 061
     Dates: start: 20090313
  9. CICLOPIROX OLAMINE. [Concomitant]
     Active Substance: CICLOPIROX OLAMINE
     Indication: FOLLICULITIS
     Dosage: 10.00 GRAMS
     Route: 061
     Dates: start: 20090324
  10. SENNOSIDE A [Concomitant]
     Active Substance: SENNOSIDE A
     Indication: CONSTIPATION
     Dosage: 12.00 MG
     Route: 048
     Dates: start: 20090226

REACTIONS (5)
  - Confusional state [Recovered/Resolved]
  - Respiratory failure [Recovered/Resolved]
  - Oedema [Recovered/Resolved]
  - Otitis externa [Recovered/Resolved]
  - Infection [Recovered/Resolved]

NARRATIVE: CASE EVENT DATE: 20090506
